FAERS Safety Report 24528306 (Version 1)
Quarter: 2024Q4

REPORT INFORMATION
  Report Type: Spontaneous
  Country: US (occurrence: None)
  Receive Date: 20241018
  Receipt Date: 20241018
  Transmission Date: 20250114
  Serious: No
  Sender: Public
  Company Number: None

PATIENT
  Age: 75 Year
  Sex: Female

DRUGS (1)
  1. PHENTERMINE HYDROCHLORIDE\TOPIRAMATE [Suspect]
     Active Substance: PHENTERMINE HYDROCHLORIDE\TOPIRAMATE
     Indication: Obesity
     Dosage: FREQUENCY : DAILY;?
     Route: 048
     Dates: start: 20240311, end: 20240410

REACTIONS (2)
  - Depression [None]
  - Insomnia [None]

NARRATIVE: CASE EVENT DATE: 20240410
